FAERS Safety Report 7406012-8 (Version None)
Quarter: 2011Q2

REPORT INFORMATION
  Report Type: 
  Country: None (occurrence: None)
  Receive Date: 20110411
  Receipt Date: 20110404
  Transmission Date: 20111010
  Serious: Yes (Hospitalization)
  Sender: FDA-Public Use
  Company Number: A0898445A

PATIENT
  Age: 52 Year
  Sex: Female

DRUGS (2)
  1. AVANDIA [Suspect]
     Dosage: 4MG PER DAY
     Route: 048
     Dates: start: 20040130, end: 20070501
  2. AVANDAMET [Suspect]
     Route: 065
     Dates: start: 20040130, end: 20070101

REACTIONS (1)
  - ARTERIOSCLEROSIS [None]
